FAERS Safety Report 10280603 (Version 1)
Quarter: 2014Q3

REPORT INFORMATION
  Report Type: Spontaneous
  Country: GB (occurrence: GB)
  Receive Date: 20140707
  Receipt Date: 20140707
  Transmission Date: 20150326
  Serious: Yes (Hospitalization)
  Sender: FDA-Public Use
  Company Number: GB-MYLANLABS-2014S1014922

PATIENT
  Sex: Male

DRUGS (12)
  1. ORAMORPH SR SUSTAINED RELEASE [Concomitant]
     Active Substance: MORPHINE SULFATE
     Route: 048
  2. CARVEDILOL. [Concomitant]
     Active Substance: CARVEDILOL
     Route: 048
  3. WARFARIN [Concomitant]
     Active Substance: WARFARIN
  4. ZOMORPH [Concomitant]
     Active Substance: MORPHINE SULFATE
  5. PARACETAMOL [Concomitant]
     Active Substance: ACETAMINOPHEN
  6. METOCLOPRAMIDE. [Concomitant]
     Active Substance: METOCLOPRAMIDE
  7. CITALOPRAM [Concomitant]
     Active Substance: CITALOPRAM HYDROBROMIDE
  8. GABAPENTIN. [Suspect]
     Active Substance: GABAPENTIN
     Indication: NEURALGIA
     Route: 048
     Dates: start: 20140522
  9. MACROGOL [Concomitant]
     Active Substance: POLYETHYLENE GLYCOLS
  10. ZOPICLONE [Concomitant]
     Active Substance: ZOPICLONE
  11. HYDROXYCARBAMIDE [Concomitant]
     Active Substance: HYDROXYUREA
  12. LANSOPRAZOLE. [Concomitant]
     Active Substance: LANSOPRAZOLE

REACTIONS (2)
  - Abdominal distension [Recovering/Resolving]
  - Abdominal pain [Recovering/Resolving]

NARRATIVE: CASE EVENT DATE: 20140522
